FAERS Safety Report 8081747-5 (Version None)
Quarter: 2012Q1

REPORT INFORMATION
  Report Type: 
  Country: None (occurrence: None)
  Receive Date: 20120130
  Receipt Date: 20120118
  Transmission Date: 20120608
  Serious: Yes (Other)
  Sender: FDA-Public Use
  Company Number: US-ELI_LILLY_AND_COMPANY-US201112006043

PATIENT
  Sex: Female

DRUGS (1)
  1. ADCIRCA [Suspect]
     Dosage: 40 MG, QD
     Dates: start: 20110208

REACTIONS (1)
  - RADIATION PNEUMONITIS [None]
